FAERS Safety Report 23330875 (Version 1)
Quarter: 2023Q4

REPORT INFORMATION
  Report Type: Spontaneous
  Country: GB (occurrence: GB)
  Receive Date: 20231222
  Receipt Date: 20231222
  Transmission Date: 20240110
  Serious: Yes (Life-Threatening, Other)
  Sender: FDA-Public Use
  Company Number: None

PATIENT
  Age: 69 Year
  Sex: Male
  Weight: 114 kg

DRUGS (12)
  1. RAMIPRIL [Suspect]
     Active Substance: RAMIPRIL
     Indication: Product used for unknown indication
     Dosage: 10 MILIGRAM, QD
     Route: 065
     Dates: start: 20230615
  2. AMLODIPINE [Concomitant]
     Active Substance: AMLODIPINE BESYLATE
     Dosage: 1 DOSAGE FORM, QD
     Route: 065
     Dates: start: 20231201
  3. ATORVASTATIN [Concomitant]
     Active Substance: ATORVASTATIN
     Dosage: 1 DOSAGE FORM, QD. EVENING
     Route: 065
     Dates: start: 20230615
  4. Cetraben [Concomitant]
     Dosage: USE AS DIRECTED
     Route: 065
     Dates: start: 20231206, end: 20231207
  5. DERMOL [Concomitant]
     Active Substance: BENZALKONIUM CHLORIDE\CHLORHEXIDINE HYDROCHLORIDE\ISOPROPYL MYRISTATE\PARAFFIN
     Dosage: USE AS DIRECTED
     Route: 065
     Dates: start: 20231206, end: 20231207
  6. DOXAZOSIN [Concomitant]
     Active Substance: DOXAZOSIN MESYLATE
     Dosage: 1 DOSAGE FORM, QD
     Route: 065
     Dates: start: 20230309
  7. FEXOFENADINE [Concomitant]
     Active Substance: FEXOFENADINE HYDROCHLORIDE
     Dosage: 1 DOSAGE FORM, BID
     Route: 065
     Dates: start: 20231206
  8. FLUCLOXACILLIN [Concomitant]
     Active Substance: FLUCLOXACILLIN
     Route: 065
     Dates: start: 20231103, end: 20231110
  9. BETAMETHASONE VALERATE\FUSIDIC ACID [Concomitant]
     Active Substance: BETAMETHASONE VALERATE\FUSIDIC ACID
     Dosage: UNK UNK, BID, (APPLY TWICE DAILY)
     Route: 065
     Dates: start: 20231206, end: 20231207
  10. HYDROCORTISONE [Concomitant]
     Active Substance: HYDROCORTISONE
     Dosage: UNK UNK, BID (~APPLY TWICE A DAY FOR 5 DAYS)
     Route: 065
     Dates: start: 20231005, end: 20231010
  11. INDAPAMIDE [Concomitant]
     Active Substance: INDAPAMIDE
     Dosage: MORNING
     Route: 065
     Dates: start: 20230615
  12. PERMETHRIN [Concomitant]
     Active Substance: PERMETHRIN
     Dosage: APPLY OVER SCALP , LEAVE IT FOR 24 HORUS AND TH...
     Route: 065
     Dates: start: 20231012, end: 20231026

REACTIONS (1)
  - Anaphylactic reaction [Unknown]
